FAERS Safety Report 9163598 (Version 3)
Quarter: 2013Q2

REPORT INFORMATION
  Report Type: Spontaneous
  Country: US (occurrence: US)
  Receive Date: 20130314
  Receipt Date: 20130416
  Transmission Date: 20140414
  Serious: No
  Sender: FDA-Public Use
  Company Number: US-B.I. PHARMACEUTICALS,INC./RIDGEFIELD-2013-BI-06352BP

PATIENT
  Sex: Female

DRUGS (8)
  1. SPIRIVA [Suspect]
     Indication: CHRONIC OBSTRUCTIVE PULMONARY DISEASE
     Dosage: 18 MCG
     Route: 055
     Dates: start: 2005
  2. POTASSIUM [Concomitant]
     Dosage: 20 MEQ
     Route: 048
  3. FUROSEMIDE [Concomitant]
     Dosage: 40 MG
     Route: 048
  4. WARFARIN [Concomitant]
     Dosage: 1 MG
     Route: 048
  5. PERSERVISION [Concomitant]
     Route: 048
  6. LISINOPRIL [Concomitant]
     Dosage: 10 MG
     Route: 048
  7. GEMFIBROZIL [Concomitant]
     Dosage: 600 MG
     Route: 048
  8. CALCIUM WITH VITAMIN D [Concomitant]
     Route: 048

REACTIONS (5)
  - Macular degeneration [Not Recovered/Not Resolved]
  - Diplopia [Not Recovered/Not Resolved]
  - Oedema peripheral [Recovered/Resolved]
  - Movement disorder [Not Recovered/Not Resolved]
  - Dizziness postural [Not Recovered/Not Resolved]
